FAERS Safety Report 10751861 (Version 2)
Quarter: 2015Q1

REPORT INFORMATION
  Report Type: Spontaneous
  Country: US (occurrence: US)
  Receive Date: 20150130
  Receipt Date: 20150305
  Transmission Date: 20150721
  Serious: Yes (Other)
  Sender: FDA-Public Use
  Company Number: US-ENDO PHARMACEUTICALS INC.-FORT20140081

PATIENT
  Sex: Female

DRUGS (2)
  1. FORTESTA [Suspect]
     Active Substance: TESTOSTERONE
     Indication: ACCIDENTAL EXPOSURE TO PRODUCT
  2. FORTESTA [Suspect]
     Active Substance: TESTOSTERONE
     Indication: EXPOSURE DURING PREGNANCY
     Dosage: N/A

REACTIONS (2)
  - Exposure during pregnancy [Unknown]
  - Accidental exposure to product [Unknown]
